FAERS Safety Report 22656826 (Version 5)
Quarter: 2024Q1

REPORT INFORMATION
  Report Type: Report from Study
  Country: US (occurrence: US)
  Receive Date: 20230630
  Receipt Date: 20240303
  Transmission Date: 20240410
  Serious: Yes (Hospitalization, Other)
  Sender: FDA-Public Use
  Company Number: US-ACADIA PHARMACEUTICALS INC.-ACA-2023-PIM-002235

PATIENT
  Sex: Male

DRUGS (2)
  1. NUPLAZID [Suspect]
     Active Substance: PIMAVANSERIN TARTRATE
     Indication: Parkinson^s disease psychosis
     Dosage: 34 MILLIGRAM, QD
     Route: 048
     Dates: start: 20221205
  2. NUPLAZID [Suspect]
     Active Substance: PIMAVANSERIN TARTRATE
     Indication: Parkinson^s disease

REACTIONS (10)
  - Enterococcal infection [Unknown]
  - Sleep talking [Unknown]
  - Cellulitis [Unknown]
  - Slow response to stimuli [Unknown]
  - Depression [Not Recovered/Not Resolved]
  - Fatigue [Unknown]
  - Staring [Unknown]
  - Hallucination [Unknown]
  - Confusional state [Unknown]
  - Confusional state [Unknown]
